FAERS Safety Report 14225679 (Version 1)
Quarter: 2017Q4

REPORT INFORMATION
  Report Type: Spontaneous
  Country: US (occurrence: None)
  Receive Date: 20171123
  Receipt Date: 20171123
  Transmission Date: 20180321
  Serious: Yes (Other)
  Sender: FDA-Public Use
  Company Number: None

PATIENT
  Sex: Female

DRUGS (1)
  1. REMICADE [Suspect]
     Active Substance: INFLIXIMAB
     Dosage: 300MG Q7 WEEKS IV
     Route: 042
     Dates: start: 20171013, end: 20171122

REACTIONS (4)
  - Therapy cessation [None]
  - Rash [None]
  - Infusion related reaction [None]
  - Therapy change [None]
